FAERS Safety Report 5392031-2 (Version None)
Quarter: 2007Q3

REPORT INFORMATION
  Report Type: 
  Country: None (occurrence: None)
  Receive Date: 20070720
  Receipt Date: 20070712
  Transmission Date: 20080115
  Serious: Yes (Hospitalization)
  Sender: FDA-Public Use
  Company Number: FR-BAYER-200710423BFR

PATIENT
  Age: 86 Year
  Sex: Female

DRUGS (1)
  1. IZILOX [Suspect]
     Indication: BRONCHITIS
     Route: 048
     Dates: start: 20070601, end: 20070615

REACTIONS (3)
  - CONFUSIONAL STATE [None]
  - DELIRIUM [None]
  - HALLUCINATION, VISUAL [None]
